FAERS Safety Report 8041933-7 (Version None)
Quarter: 2011Q4

REPORT INFORMATION
  Report Type: 
  Country: None (occurrence: None)
  Receive Date: 20111202
  Receipt Date: 20110913
  Transmission Date: 20120403
  Serious: No
  Sender: FDA-Public Use
  Company Number: PHEH2011US04144

PATIENT

DRUGS (1)
  1. FANAPT [Suspect]
     Dosage: OT

REACTIONS (3)
  - DRUG INTOLERANCE [None]
  - NAUSEA [None]
  - DIZZINESS [None]
